FAERS Safety Report 4696232-8 (Version None)
Quarter: 2005Q2

REPORT INFORMATION
  Report Type: 
  Country: None (occurrence: None)
  Receive Date: 20050621
  Receipt Date: 20050117
  Transmission Date: 20051028
  Serious: Yes (Life-Threatening, Hospitalization)
  Sender: FDA-Public Use
  Company Number: 2005UW00860

PATIENT
  Age: 67 Year
  Sex: Female
  Weight: 101 kg

DRUGS (6)
  1. CRESTOR [Suspect]
     Indication: HYPERLIPIDAEMIA
     Route: 048
     Dates: start: 20040301, end: 20041001
  2. CRESTOR [Suspect]
     Route: 048
     Dates: start: 20041010, end: 20041104
  3. TRICOR [Suspect]
     Route: 048
     Dates: start: 20041010, end: 20041104
  4. BENICAR [Concomitant]
  5. OXAPROZIN [Concomitant]
  6. HYDROCHLOROTHIAZIDE-OLMESARTAN [Concomitant]

REACTIONS (7)
  - ABASIA [None]
  - CARDIAC DISORDER [None]
  - CARDIAC FAILURE [None]
  - DRUG INTERACTION [None]
  - MYOCARDITIS [None]
  - RENAL FAILURE ACUTE [None]
  - RHABDOMYOLYSIS [None]
